FAERS Safety Report 8436727-4 (Version None)
Quarter: 2012Q2

REPORT INFORMATION
  Report Type: 
  Country: None (occurrence: None)
  Receive Date: 20120614
  Receipt Date: 20120612
  Transmission Date: 20120825
  Serious: Yes (Disabling)
  Sender: FDA-Public Use
  Company Number: US-MERCK-1201USA03655

PATIENT
  Age: 60 Year
  Sex: Female

DRUGS (14)
  1. ZOLOFT [Concomitant]
     Route: 065
  2. SINEMET CR [Suspect]
     Route: 048
  3. COMTAN [Concomitant]
     Route: 065
  4. MELATONIN [Concomitant]
     Route: 065
  5. DIOVAN [Concomitant]
     Route: 065
  6. VITAMINS (UNSPECIFIED) [Concomitant]
     Route: 065
  7. SIMVASTATIN [Concomitant]
     Route: 048
  8. OMEGA-3 MARINE TRIGLYCERIDES [Concomitant]
     Route: 065
  9. CLOBETASOL PROPIONATE [Concomitant]
     Route: 065
  10. ACETAMINOPHEN AND HYDROCODONE BITARTRATE [Concomitant]
     Route: 065
  11. SINEMET [Suspect]
     Route: 048
     Dates: start: 19890101
  12. AMANTADINE HYDROCHLORIDE [Concomitant]
     Route: 065
  13. PATADAY [Concomitant]
     Route: 065
  14. PROAIR HFA [Concomitant]
     Route: 065

REACTIONS (8)
  - ABDOMINAL PAIN UPPER [None]
  - NAUSEA [None]
  - INSOMNIA [None]
  - DRUG INEFFECTIVE [None]
  - ASTHENIA [None]
  - DEPRESSION [None]
  - DECREASED APPETITE [None]
  - VOMITING [None]
